FAERS Safety Report 8548546-9 (Version None)
Quarter: 2012Q3

REPORT INFORMATION
  Report Type: 
  Country: None (occurrence: None)
  Receive Date: 20120730
  Receipt Date: 20120719
  Transmission Date: 20120928
  Serious: Yes (Other)
  Sender: FDA-Public Use
  Company Number: JP-VERTEX PHARMACEUTICALS INC.-AE-2012-010021

PATIENT
  Age: 57 Year
  Sex: Male

DRUGS (9)
  1. PEG-INTRON [Concomitant]
     Route: 058
     Dates: start: 20120620
  2. REBETOL [Concomitant]
     Route: 048
     Dates: start: 20120620
  3. ALLOPURINOL [Concomitant]
  4. REBETOL [Concomitant]
     Indication: HEPATITIS C
     Route: 048
     Dates: start: 20120606, end: 20120620
  5. PEG-INTRON [Concomitant]
     Indication: HEPATITIS C
     Route: 058
     Dates: start: 20120606, end: 20120613
  6. LENDEM D [Concomitant]
     Route: 048
  7. ALLOPURINOL [Concomitant]
     Indication: BLOOD URIC ACID INCREASED
     Route: 048
     Dates: start: 20120608
  8. TELAVIC (TELAPREVIR) [Suspect]
     Indication: HEPATITIS C
     Route: 048
     Dates: start: 20120606
  9. LOXOPROFEN SODIUM HYDRATE [Concomitant]
     Route: 048
     Dates: start: 20120606

REACTIONS (1)
  - ERYTHEMA MULTIFORME [None]
